FAERS Safety Report 6786577-X (Version None)
Quarter: 2010Q2

REPORT INFORMATION
  Report Type: 
  Country: None (occurrence: None)
  Receive Date: 20100623
  Receipt Date: 20100610
  Transmission Date: 20101027
  Serious: No
  Sender: FDA-Public Use
  Company Number: US-ELI_LILLY_AND_COMPANY-US201005006896

PATIENT
  Sex: Female

DRUGS (2)
  1. FORTEO [Suspect]
     Indication: OSTEOPOROSIS
     Dosage: 20 UG, DAILY (1/D)
     Dates: start: 20090720
  2. FENTANYL [Concomitant]

REACTIONS (13)
  - ABDOMINAL DISCOMFORT [None]
  - BACK PAIN [None]
  - FEELING COLD [None]
  - FIBROMYALGIA [None]
  - HEAD INJURY [None]
  - HYPOAESTHESIA [None]
  - LETHARGY [None]
  - MEMORY IMPAIRMENT [None]
  - NERVOUS SYSTEM DISORDER [None]
  - PARAESTHESIA [None]
  - POST POLIO SYNDROME [None]
  - TREMOR [None]
  - VITAMIN D DECREASED [None]
